FAERS Safety Report 5190490-1 (Version None)
Quarter: 2006Q4

REPORT INFORMATION
  Report Type: 
  Country: None (occurrence: None)
  Receive Date: 20061222
  Receipt Date: 20060317
  Transmission Date: 20070319
  Serious: Yes (Death, Life-Threatening)
  Sender: FDA-Public Use
  Company Number: JP-JPN-A200600973

PATIENT
  Sex: Male
  Weight: 56 kg

DRUGS (15)
  1. ZIAGEN [Suspect]
     Indication: ACQUIRED IMMUNODEFICIENCY SYNDROME
     Dosage: 300MG TWICE PER DAY
     Route: 048
  2. EPIVIR [Suspect]
     Indication: ACQUIRED IMMUNODEFICIENCY SYNDROME
     Dosage: 150MG TWICE PER DAY
     Route: 048
  3. ZERIT [Suspect]
     Indication: ACQUIRED IMMUNODEFICIENCY SYNDROME
     Dosage: 30MG TWICE PER DAY
     Route: 048
  4. SELBEX [Concomitant]
     Indication: GASTRITIS
     Dosage: 100MG PER DAY
     Route: 048
  5. LANDSEN [Concomitant]
     Indication: EPILEPSY
     Dosage: 2MG PER DAY
     Route: 048
  6. UNKNOWN DRUG [Concomitant]
     Indication: RETINAL HAEMORRHAGE
     Dosage: .3MG PER DAY
     Route: 048
     Dates: start: 20051201, end: 20060209
  7. ADONA (AC-17) [Concomitant]
     Indication: RETINAL HAEMORRHAGE
     Dosage: 90MG PER DAY
     Route: 048
     Dates: start: 20051201, end: 20060209
  8. CARNACULIN [Concomitant]
     Indication: RETINAL HAEMORRHAGE
     Dosage: 150MG PER DAY
     Route: 048
     Dates: start: 20051201, end: 20060209
  9. JUVELA NICOTINATE [Concomitant]
     Indication: RETINAL HAEMORRHAGE
     Dosage: 300MG PER DAY
     Route: 048
     Dates: start: 20051201, end: 20060209
  10. NOVOSEVEN [Concomitant]
     Indication: FACTOR VIII DEFICIENCY
     Dosage: 9.6MG PER DAY
     Route: 042
     Dates: start: 20060209, end: 20060326
  11. TIENAM [Concomitant]
     Indication: SEPSIS
     Dosage: 1.5G PER DAY
     Route: 042
     Dates: start: 20060222, end: 20060225
  12. MEROPEN [Concomitant]
     Indication: SEPSIS
     Dosage: 2G PER DAY
     Route: 042
     Dates: start: 20060225, end: 20060308
  13. SOL-MELCORT [Concomitant]
     Indication: ENCEPHALOPATHY
     Dosage: 1G PER DAY
     Route: 042
     Dates: start: 20060310, end: 20060312
  14. PREDONINE [Concomitant]
     Indication: ENCEPHALOPATHY
     Dosage: 45MG PER DAY
     Route: 048
     Dates: start: 20060313, end: 20060326
  15. DIFLUCAN [Concomitant]
     Indication: FUNGAL INFECTION
     Dosage: 200MG PER DAY
     Route: 048
     Dates: start: 20060314, end: 20060326

REACTIONS (7)
  - CEREBRAL HAEMORRHAGE [None]
  - DEPRESSED LEVEL OF CONSCIOUSNESS [None]
  - DRUG INEFFECTIVE [None]
  - DYSARTHRIA [None]
  - ENCEPHALOPATHY [None]
  - LEUKOENCEPHALOMYELITIS [None]
  - SOLILOQUY [None]
